FAERS Safety Report 19713488 (Version 1)
Quarter: 2021Q3

REPORT INFORMATION
  Report Type: Spontaneous
  Country: US (occurrence: US)
  Receive Date: 20210817
  Receipt Date: 20210817
  Transmission Date: 20211014
  Serious: No
  Sender: FDA-Public Use
  Company Number: None

PATIENT
  Age: 78 Year
  Sex: Male
  Weight: 150 kg

DRUGS (1)
  1. EMPAGLIFLOZIN/ METFORMIN (EMPAGLIFLOZIN 12.5MG/METFORMIN 1000MG TAB, O [Suspect]
     Active Substance: EMPAGLIFLOZIN\METFORMIN HYDROCHLORIDE
     Route: 048
     Dates: start: 20201120, end: 20201222

REACTIONS (1)
  - Polyuria [None]

NARRATIVE: CASE EVENT DATE: 20201222
